FAERS Safety Report 7911622-5 (Version None)
Quarter: 2011Q4

REPORT INFORMATION
  Report Type: 
  Country: None (occurrence: None)
  Receive Date: 20111114
  Receipt Date: 20111114
  Transmission Date: 20120403
  Serious: Yes (Hospitalization, Other)
  Sender: FDA-Public Use
  Company Number: None

PATIENT
  Age: 27 Year
  Sex: Female
  Weight: 81.646 kg

DRUGS (1)
  1. CYMBALTA [Suspect]
     Indication: FIBROMYALGIA
     Dosage: 60MG
     Route: 048
     Dates: start: 20110101, end: 20111019

REACTIONS (7)
  - HEADACHE [None]
  - PAIN [None]
  - INSOMNIA [None]
  - PARAESTHESIA [None]
  - TREMOR [None]
  - CRYING [None]
  - DIPLOPIA [None]
